FAERS Safety Report 4967918-2 (Version None)
Quarter: 2006Q2

REPORT INFORMATION
  Report Type: 
  Country: None (occurrence: None)
  Receive Date: 20060410
  Receipt Date: 20060329
  Transmission Date: 20061013
  Serious: Yes (Hospitalization)
  Sender: FDA-Public Use
  Company Number: US-MERCK-0604USA00131

PATIENT
  Age: 44 Year
  Sex: Female
  Weight: 105 kg

DRUGS (9)
  1. VIOXX [Suspect]
     Indication: RHEUMATOID ARTHRITIS
     Route: 048
     Dates: start: 20000529, end: 20040930
  2. ATENOLOL [Concomitant]
     Route: 065
  3. ARAVA [Concomitant]
     Route: 065
  4. HUMULIN [Concomitant]
     Route: 065
  5. PREDNISONE [Concomitant]
     Route: 065
  6. ZYPREXA [Concomitant]
     Route: 065
     Dates: start: 20030101, end: 20040324
  7. ULTRACET [Concomitant]
     Route: 065
     Dates: start: 20030101
  8. HUMIRA [Concomitant]
     Route: 065
  9. AMBIEN [Concomitant]
     Route: 065

REACTIONS (14)
  - ANXIETY [None]
  - BREAST PAIN [None]
  - CHEST PAIN [None]
  - CORONARY ARTERY DISEASE [None]
  - DYSPNOEA [None]
  - FOOT FRACTURE [None]
  - HAEMORRHAGE [None]
  - HYPERTENSION [None]
  - MUSCULOSKELETAL CHEST PAIN [None]
  - MYOCARDIAL INFARCTION [None]
  - PLEURISY [None]
  - PROCEDURAL COMPLICATION [None]
  - VENTRICULAR EXTRASYSTOLES [None]
  - WEIGHT INCREASED [None]
